FAERS Safety Report 18215461 (Version 1)
Quarter: 2020Q3

REPORT INFORMATION
  Report Type: Spontaneous
  Country: SG (occurrence: SG)
  Receive Date: 20200831
  Receipt Date: 20200831
  Transmission Date: 20201103
  Serious: Yes (Hospitalization)
  Sender: FDA-Public Use
  Company Number: SG-COEPTIS PHARMACEUTICALS, INC.-COE-2020-000008

PATIENT
  Age: 25 Year
  Sex: Male

DRUGS (2)
  1. PARACETAMOL [Suspect]
     Active Substance: ACETAMINOPHEN
     Dosage: 13 GRAM (26 TABLETS)
  2. AMLODIPINE [Suspect]
     Active Substance: AMLODIPINE BESYLATE
     Dosage: 550 MG (110 TABLETS)

REACTIONS (14)
  - Somnolence [Recovered/Resolved]
  - Lactic acidosis [Recovered/Resolved]
  - Ejection fraction decreased [Unknown]
  - Left ventricular dysfunction [Unknown]
  - Pyrexia [Recovered/Resolved]
  - Hypotension [Recovered/Resolved]
  - Intentional overdose [Recovered/Resolved]
  - Shock [Recovered/Resolved]
  - Tachycardia [Recovered/Resolved]
  - Right ventricular dysfunction [Unknown]
  - White blood cell count increased [Unknown]
  - Left ventricular dilatation [Unknown]
  - Hypokalaemia [Recovered/Resolved]
  - Mental disorder [Recovered/Resolved]
